FAERS Safety Report 8509611-5 (Version None)
Quarter: 2012Q3

REPORT INFORMATION
  Report Type: 
  Country: None (occurrence: None)
  Receive Date: 20120713
  Receipt Date: 20120702
  Transmission Date: 20120928
  Serious: Yes (Life-Threatening, Hospitalization)
  Sender: FDA-Public Use
  Company Number: US-FRI-1000036816

PATIENT
  Sex: Female
  Weight: 68.03 kg

DRUGS (4)
  1. VIIBRYD [Suspect]
     Indication: DEPRESSION
     Dosage: 10 MG
     Dates: start: 20120111
  2. VIIBRYD [Suspect]
     Dosage: 20 MG
  3. VIIBRYD [Suspect]
     Dosage: 40 MG
     Dates: end: 20120315
  4. MECLIZINE [Suspect]
     Indication: VERTIGO

REACTIONS (6)
  - ENCEPHALOPATHY [None]
  - INSOMNIA [None]
  - UNEVALUABLE EVENT [None]
  - AGGRESSION [None]
  - MENTAL STATUS CHANGES [None]
  - HALLUCINATION [None]
